FAERS Safety Report 7853687-5 (Version None)
Quarter: 2011Q4

REPORT INFORMATION
  Report Type: 
  Country: None (occurrence: None)
  Receive Date: 20111026
  Receipt Date: 20111012
  Transmission Date: 20120403
  Serious: Yes (Hospitalization)
  Sender: FDA-Public Use
  Company Number: US-BAYER-2010-009241

PATIENT
  Age: 45 Year
  Sex: Female
  Weight: 74.83 kg

DRUGS (5)
  1. NITROFURANTOIN [Concomitant]
     Dosage: 100 MG, BID
     Dates: start: 20050623
  2. AMOXICILLIN [Concomitant]
     Dosage: 875 MG, UNK
     Route: 048
     Dates: start: 20050616
  3. VIGAMOX [Concomitant]
     Dosage: 0.5 %, UNK
     Route: 047
     Dates: start: 20050510
  4. YASMIN [Suspect]
     Dosage: UNK
     Dates: start: 20040601, end: 20050801
  5. SULFAMETHOXAZOLE AND TRIMETHOPRIM [Concomitant]
     Dosage: UNK
     Route: 048
     Dates: start: 20050616

REACTIONS (4)
  - INJURY [None]
  - PAIN [None]
  - MENTAL DISORDER [None]
  - DEEP VEIN THROMBOSIS [None]
